FAERS Safety Report 26147292 (Version 1)
Quarter: 2025Q4

REPORT INFORMATION
  Report Type: Report from Study
  Country: US (occurrence: US)
  Receive Date: 20251211
  Receipt Date: 20251211
  Transmission Date: 20260119
  Serious: Yes (Hospitalization)
  Sender: JAZZ
  Company Number: US-JAZZ PHARMACEUTICALS-2025-US-028308

PATIENT
  Sex: Female

DRUGS (1)
  1. EPIDIOLEX [Suspect]
     Active Substance: CANNABIDIOL
     Indication: Partial seizures
     Dosage: 0.7 MILLILITER, BID (NASOGASTRIC TUBE)

REACTIONS (3)
  - Hospitalisation [Not Recovered/Not Resolved]
  - Product administration interrupted [Unknown]
  - Off label use [Unknown]
